FAERS Safety Report 22540505 (Version 1)
Quarter: 2023Q2

REPORT INFORMATION
  Report Type: Spontaneous
  Country: US (occurrence: None)
  Receive Date: 20230607
  Receipt Date: 20230607
  Transmission Date: 20230721
  Serious: Yes (Hospitalization)
  Sender: FDA-Public Use
  Company Number: None

PATIENT
  Sex: Female

DRUGS (10)
  1. XOLAIR [Suspect]
     Active Substance: OMALIZUMAB
     Indication: Idiopathic urticaria
     Dosage: FREQUENCY : MONTHLY;?
     Route: 058
     Dates: start: 20230314
  2. EPINEPHRINE [Concomitant]
  3. HAEGARDA [Concomitant]
     Active Substance: HUMAN C1-ESTERASE INHIBITOR
  4. ICATIBANT [Concomitant]
     Active Substance: ICATIBANT ACETATE
  5. LEVOTHYROXIN TAB [Concomitant]
  6. OPANA ER TAB [Concomitant]
  7. PEPCID AC TAB [Concomitant]
  8. VIOXX [Concomitant]
     Active Substance: ROFECOXIB
  9. ZOLPIDEM [Concomitant]
     Active Substance: ZOLPIDEM TARTRATE
  10. ZYRTEC ALLGY [Concomitant]

REACTIONS (5)
  - Sepsis [None]
  - Oral disorder [None]
  - Respiratory disorder [None]
  - Gastrointestinal disorder [None]
  - Skin disorder [None]
